FAERS Safety Report 8317852-5 (Version None)
Quarter: 2012Q2

REPORT INFORMATION
  Report Type: 
  Country: None (occurrence: None)
  Receive Date: 20120427
  Receipt Date: 20120420
  Transmission Date: 20120825
  Serious: Yes (Hospitalization, Disabling)
  Sender: FDA-Public Use
  Company Number: US-BAYER-2012-009264

PATIENT
  Age: 16 Year
  Sex: Female

DRUGS (5)
  1. DEXAMETHASONE [Concomitant]
     Dosage: 4 MG, QID
     Route: 048
  2. IBUPROFEN [Concomitant]
     Dosage: 800 MG, TID
     Route: 048
  3. PENICILLIN VK [Concomitant]
     Dosage: 500 MG, QID
     Route: 048
  4. YAZ [Suspect]
     Indication: CONTRACEPTION
     Dosage: UNK
     Dates: start: 20090701, end: 20100201
  5. HYDROCODONE BITARTRATE AND ACETAMINOPHEN [Concomitant]
     Indication: PAIN
     Dosage: 7.5 MG-500 MG/1/2 TABLETS, QID
     Route: 048

REACTIONS (8)
  - ANHEDONIA [None]
  - PAIN [None]
  - DEFORMITY [None]
  - ANXIETY [None]
  - PELVIC VENOUS THROMBOSIS [None]
  - MENTAL DISORDER [None]
  - DEEP VEIN THROMBOSIS [None]
  - INJURY [None]
